FAERS Safety Report 11373937 (Version 1)
Quarter: 2015Q3

REPORT INFORMATION
  Report Type: Spontaneous
  Country: US (occurrence: US)
  Receive Date: 20150811
  Receipt Date: 20150811
  Transmission Date: 20151125
  Serious: No
  Sender: FDA-Public Use
  Company Number: US-ELI_LILLY_AND_COMPANY-US201110003439

PATIENT
  Sex: Male
  Weight: 113.38 kg

DRUGS (1)
  1. CIALIS [Suspect]
     Active Substance: TADALAFIL
     Indication: PROMOTION OF WOUND HEALING
     Dosage: 20 MG, 3/W
     Dates: start: 20111001, end: 20111008

REACTIONS (3)
  - Back pain [Recovered/Resolved]
  - Off label use [Recovered/Resolved]
  - Arthralgia [Recovered/Resolved]
